FAERS Safety Report 15821502 (Version 3)
Quarter: 2019Q1

REPORT INFORMATION
  Report Type: Spontaneous
  Country: US (occurrence: US)
  Receive Date: 20190114
  Receipt Date: 20190118
  Transmission Date: 20190417
  Serious: Yes (Other)
  Sender: FDA-Public Use
  Company Number: US-PFIZER INC-2018073131

PATIENT
  Age: 54 Year
  Sex: Male

DRUGS (8)
  1. FLUCONAZOLE. [Suspect]
     Active Substance: FLUCONAZOLE
     Indication: MENINGITIS COCCIDIOIDES
     Dosage: 400 MG, DAILY
     Route: 048
     Dates: start: 1991
  2. ACETYLSALICYLIC ACID [Concomitant]
     Active Substance: ASPIRIN
     Dosage: UNK
  3. FLUCONAZOLE. [Suspect]
     Active Substance: FLUCONAZOLE
     Dosage: 1200 MG, DAILY (GRADUALLY INCREASED TO 1200 MG DAILY OVER THE NEXT DECADE)
     Route: 048
     Dates: start: 2001
  4. METOPROLOL. [Concomitant]
     Active Substance: METOPROLOL
     Dosage: UNK
  5. EZETIMIBE. [Concomitant]
     Active Substance: EZETIMIBE
     Dosage: UNK
  6. LISINOPRIL. [Concomitant]
     Active Substance: LISINOPRIL
     Dosage: UNK
  7. CLOPIDOGREL [Concomitant]
     Active Substance: CLOPIDOGREL BISULFATE
     Dosage: UNK
  8. EVOLOCUMAB [Concomitant]
     Active Substance: EVOLOCUMAB
     Dosage: ANTI-PCSK9 MONOCLONAL ANTIBODY BIMONTHLY INJECTIONS

REACTIONS (1)
  - Familial periodic paralysis [Recovered/Resolved]

NARRATIVE: CASE EVENT DATE: 2011
